FAERS Safety Report 8452107-X (Version None)
Quarter: 2012Q2

REPORT INFORMATION
  Report Type: 
  Country: None (occurrence: None)
  Receive Date: 20120620
  Receipt Date: 20120612
  Transmission Date: 20120825
  Serious: Yes (Death)
  Sender: FDA-Public Use
  Company Number: US-GLAXOSMITHKLINE-A0970352A

PATIENT
  Age: 67 Year
  Sex: Male
  Weight: 92.7 kg

DRUGS (16)
  1. RESTORIL [Concomitant]
  2. NEURONTIN [Concomitant]
  3. DUONEB [Concomitant]
  4. EFFEXOR XR [Concomitant]
  5. CELEBREX [Concomitant]
  6. LOVASTATIN [Concomitant]
  7. TIZANIDINE HCL [Concomitant]
  8. ADVAIR DISKUS 100/50 [Suspect]
     Indication: CHRONIC OBSTRUCTIVE PULMONARY DISEASE
     Dosage: 2PUFF TWICE PER DAY
     Route: 055
  9. THEOPHYLLINE [Concomitant]
  10. METFORMIN HCL [Concomitant]
  11. OXYCODONE HCL [Concomitant]
  12. FENTANYL-100 [Concomitant]
  13. ASPIRIN [Concomitant]
  14. SPIRIVA [Concomitant]
  15. GLYBURIDE [Concomitant]
  16. ENALAPRIL MALEATE [Concomitant]

REACTIONS (5)
  - DEATH [None]
  - PRODUCTIVE COUGH [None]
  - WHEEZING [None]
  - DYSPNOEA EXERTIONAL [None]
  - HYPOXIA [None]
